FAERS Safety Report 24817424 (Version 2)
Quarter: 2025Q1

REPORT INFORMATION
  Report Type: Spontaneous
  Country: IL (occurrence: IL)
  Receive Date: 20250108
  Receipt Date: 20250109
  Transmission Date: 20250408
  Serious: Yes (Hospitalization)
  Sender: NOVARTIS
  Company Number: IL-002147023-NVSC2025IL000501

PATIENT
  Age: 42 Year
  Sex: Female

DRUGS (1)
  1. KESIMPTA [Suspect]
     Active Substance: OFATUMUMAB
     Indication: Multiple sclerosis
     Route: 065
     Dates: start: 202212

REACTIONS (20)
  - Neutropenia [Unknown]
  - Leukopenia [Unknown]
  - Pyrexia [Unknown]
  - Tachycardia [Unknown]
  - Agranulocytosis [Unknown]
  - Cough [Unknown]
  - Inflammation [Unknown]
  - Oropharyngeal pain [Unknown]
  - Productive cough [Unknown]
  - Nasal congestion [Unknown]
  - C-reactive protein increased [Unknown]
  - Hyperhidrosis [Unknown]
  - Heart rate increased [Unknown]
  - Ear discomfort [Unknown]
  - Viral infection [Unknown]
  - Gingival pain [Unknown]
  - Pain in jaw [Unknown]
  - Bacterial infection [Unknown]
  - Blood lactate dehydrogenase increased [Unknown]
  - Migraine [Unknown]
